FAERS Safety Report 10409200 (Version 1)
Quarter: 2014Q3

REPORT INFORMATION
  Report Type: Spontaneous
  Country: US (occurrence: None)
  Receive Date: 20140822
  Receipt Date: 20140822
  Transmission Date: 20150326
  Serious: Yes (Other)
  Sender: FDA-Public Use
  Company Number: GB-H14001-14-00396

PATIENT
  Age: 62 Year
  Sex: Female

DRUGS (3)
  1. CALCICHEW D3 [Concomitant]
     Active Substance: CALCIUM\CHOLECALCIFEROL
  2. CO-AMOXICLAV [Suspect]
     Active Substance: AMOXICILLIN\CLAVULANIC ACID
     Indication: TOOTH ABSCESS
     Route: 048
     Dates: start: 20140219, end: 20140226
  3. ZAPAIN [Concomitant]
     Active Substance: ACETAMINOPHEN\CODEINE PHOSPHATE

REACTIONS (4)
  - Decreased appetite [None]
  - Malaise [None]
  - Drug-induced liver injury [None]
  - Nausea [None]

NARRATIVE: CASE EVENT DATE: 20140317
